FAERS Safety Report 8582137-9 (Version None)
Quarter: 2012Q3

REPORT INFORMATION
  Report Type: 
  Country: None (occurrence: None)
  Receive Date: 20120809
  Receipt Date: 20120806
  Transmission Date: 20120928
  Serious: Yes (Other)
  Sender: FDA-Public Use
  Company Number: US-PFIZER INC-2012191779

PATIENT
  Age: 45 Year
  Sex: Female
  Weight: 64.399 kg

DRUGS (6)
  1. LYRICA [Suspect]
     Indication: FIBROMYALGIA
     Dosage: 150 MG, 2X/DAY
     Route: 048
  2. SOMA [Concomitant]
     Indication: MUSCLE RELAXANT THERAPY
     Dosage: UNK,DAILY
  3. LORTAB [Concomitant]
     Dosage: UNK, DAILY
  4. METHADONE [Concomitant]
     Dosage: 20 MG, 4X/DAY
  5. ATIVAN [Concomitant]
     Dosage: 1 MG, DAILY
  6. LEVOTHYROXINE [Concomitant]
     Indication: THYROID DISORDER
     Dosage: 100 UG, DAILY

REACTIONS (1)
  - BLADDER PROLAPSE [None]
